FAERS Safety Report 8562231-9 (Version None)
Quarter: 2012Q3

REPORT INFORMATION
  Report Type: 
  Country: None (occurrence: None)
  Receive Date: 20120802
  Receipt Date: 20120711
  Transmission Date: 20120928
  Serious: No
  Sender: FDA-Public Use
  Company Number: US-AMGEN-USASP2011016768

PATIENT
  Age: 73 Year
  Sex: Female
  Weight: 108.4 kg

DRUGS (15)
  1. LIPITOR [Concomitant]
     Dosage: 10 MG, QD
  2. MULTAQ [Concomitant]
     Dosage: 800 MG, QD
  3. DETROL [Concomitant]
     Dosage: 4 MG, QD
  4. WELLBUTRIN XL [Concomitant]
     Dosage: 300 MG, QD
  5. OMEPRAZOLE [Concomitant]
     Dosage: 20 MG, QD
  6. ENBREL [Suspect]
     Indication: RHEUMATOID ARTHRITIS
     Dosage: 50 MG, QWK
     Dates: start: 20040101
  7. METHOTREXATE [Concomitant]
     Dosage: 7.5 MG, QWK
  8. TAZTIA XT [Concomitant]
     Dosage: 360 MG, QD
  9. FOLIC ACID [Concomitant]
     Dosage: 1 MG, QD
  10. RESTASIS [Concomitant]
     Dosage: 0.05 %, Q12H
  11. DRISDOL [Concomitant]
     Dosage: 50000 IU, QWK
  12. ERGOCALCIFEROL [Concomitant]
     Dosage: 50000 IU, QWK
  13. BENICAR HCT [Concomitant]
     Dosage: UNK UNK, QD
  14. TRAMADOL HCL [Concomitant]
     Dosage: 50 MG, UNK
  15. TRIAMCINOLONE [Concomitant]
     Dosage: 0.1 %, PRN

REACTIONS (2)
  - FIBULA FRACTURE [None]
  - FALL [None]
